FAERS Safety Report 5206164-4 (Version None)
Quarter: 2006Q4

REPORT INFORMATION
  Report Type: 
  Country: None (occurrence: None)
  Receive Date: 20061026
  Receipt Date: 20060919
  Transmission Date: 20070319
  Serious: No
  Sender: FDA-Public Use
  Company Number: 2006113258

PATIENT
  Age: 50 Year
  Sex: Female
  Weight: 117.9352 kg

DRUGS (9)
  1. LYRICA [Suspect]
     Indication: RESTLESS LEGS SYNDROME
     Dosage: 150 MG (50 MG, 3 IN 1 D)
     Dates: start: 20060801
  2. VITAMIN E [Concomitant]
  3. LORATADINE [Concomitant]
  4. ESCITALOPRAM OXALATE [Concomitant]
  5. TRAMADOL HCL [Concomitant]
  6. LOSARTAN POTASSIUM AND HYDROCHLOROTHIAZIDE [Concomitant]
  7. LANSAPRAZOLE (LANSOPRAZOLE) [Concomitant]
  8. LEVOTHYROXINE SODIUM [Concomitant]
  9. CYCLOBENZAPRINE HCL [Concomitant]

REACTIONS (1)
  - DYSKINESIA [None]
